FAERS Safety Report 7621057-0 (Version None)
Quarter: 2011Q3

REPORT INFORMATION
  Report Type: 
  Country: None (occurrence: None)
  Receive Date: 20110719
  Receipt Date: 20101116
  Transmission Date: 20111222
  Serious: No
  Sender: FDA-Public Use
  Company Number: US-KINGPHARMUSA00001-K201001399

PATIENT
  Age: 66 Year
  Sex: Female

DRUGS (3)
  1. ENSURE [Suspect]
     Dosage: UNK,
     Route: 048
  2. LEVOXYL [Suspect]
     Dosage: 50 MCG, QD
     Route: 048
     Dates: start: 20000101
  3. ASACOL [Concomitant]
     Indication: COLITIS

REACTIONS (8)
  - ORAL CANDIDIASIS [None]
  - DYSPHAGIA [None]
  - GASTROOESOPHAGEAL REFLUX DISEASE [None]
  - THROAT IRRITATION [None]
  - ORAL DISCOMFORT [None]
  - OESOPHAGEAL CANDIDIASIS [None]
  - OESOPHAGEAL IRRITATION [None]
  - BLOOD THYROID STIMULATING HORMONE INCREASED [None]
